FAERS Safety Report 12824125 (Version 1)
Quarter: 2016Q4

REPORT INFORMATION
  Report Type: Spontaneous
  Country: US (occurrence: US)
  Receive Date: 20161006
  Receipt Date: 20161006
  Transmission Date: 20170207
  Serious: Yes (Other)
  Sender: FDA-Public Use
  Company Number: None

PATIENT
  Age: 56 Year
  Sex: Female
  Weight: 62.1 kg

DRUGS (16)
  1. LISINOPRIL. [Concomitant]
     Active Substance: LISINOPRIL
  2. ASPIRIN. [Concomitant]
     Active Substance: ASPIRIN
  3. TOLTERODINE [Concomitant]
     Active Substance: TOLTERODINE
  4. IBUPROFEN. [Concomitant]
     Active Substance: IBUPROFEN
  5. PRAVASTATIN. [Concomitant]
     Active Substance: PRAVASTATIN
  6. OMEPRAZOLE. [Concomitant]
     Active Substance: OMEPRAZOLE
  7. CRANBERRY. [Concomitant]
     Active Substance: CRANBERRY
  8. GINGER. [Concomitant]
     Active Substance: GINGER
  9. JANUVIA [Suspect]
     Active Substance: SITAGLIPTIN PHOSPHATE
     Indication: TYPE 2 DIABETES MELLITUS
     Route: 048
     Dates: start: 20160616, end: 20160721
  10. NOVOLOG [Concomitant]
     Active Substance: INSULIN ASPART
  11. PROBIOTIC [Concomitant]
     Active Substance: PROBIOTICS NOS
  12. FLONASE [Concomitant]
     Active Substance: FLUTICASONE PROPIONATE
  13. CYCLOBENZAPRINE [Concomitant]
     Active Substance: CYCLOBENZAPRINE
  14. TOUJEO [Concomitant]
     Active Substance: INSULIN GLARGINE
  15. LEVOTHYROXINE. [Concomitant]
     Active Substance: LEVOTHYROXINE
  16. NITROFURANTOIN MACROCYSTALS [Concomitant]

REACTIONS (4)
  - Pain in extremity [None]
  - Joint swelling [None]
  - Abdominal pain [None]
  - Muscular weakness [None]

NARRATIVE: CASE EVENT DATE: 20160728
